FAERS Safety Report 7401656-1 (Version None)
Quarter: 2011Q2

REPORT INFORMATION
  Report Type: 
  Country: None (occurrence: None)
  Receive Date: 20110408
  Receipt Date: 20081008
  Transmission Date: 20111010
  Serious: No
  Sender: FDA-Public Use
  Company Number: 2008BI027053

PATIENT
  Sex: Female

DRUGS (1)
  1. TYSABRI [Suspect]
     Indication: MULTIPLE SCLEROSIS
     Route: 042
     Dates: start: 20070828

REACTIONS (9)
  - RASH PAPULAR [None]
  - LIMB INJURY [None]
  - CENTRAL NERVOUS SYSTEM LESION [None]
  - ALOPECIA [None]
  - BALANCE DISORDER [None]
  - OPEN WOUND [None]
  - URINARY TRACT INFECTION [None]
  - PSORIASIS [None]
  - LENTIGO [None]
